FAERS Safety Report 6458135-8 (Version None)
Quarter: 2009Q4

REPORT INFORMATION
  Report Type: 
  Country: None (occurrence: None)
  Receive Date: 20091125
  Receipt Date: 20091113
  Transmission Date: 20100525
  Serious: Yes (Disabling)
  Sender: FDA-Public Use
  Company Number: JP-ABBOTT-09P-087-0610576-00

PATIENT
  Age: 73 Year
  Sex: Male

DRUGS (5)
  1. LEUPLIN SR FOR INJECTION 11.25 MG [Suspect]
     Indication: PROSTATE CANCER STAGE IV
     Route: 058
     Dates: start: 20070825
  2. CHLORMADINONE ACETATE TAB [Concomitant]
     Indication: PROSTATE CANCER STAGE IV
     Dosage: 100 MG, 1 D
     Route: 048
     Dates: start: 20070825
  3. BIOFERMIN [Concomitant]
     Indication: GASTRITIS
     Dosage: 3 GM, 1 D
     Route: 048
     Dates: start: 20070825
  4. BERIZYM [Concomitant]
     Indication: GASTRITIS
     Dosage: 1.5 GM, 1 D
     Route: 048
     Dates: start: 20070825
  5. TS 1 [Concomitant]
     Indication: GASTRITIS
     Dosage: 100 MG, 1 D
     Route: 048
     Dates: start: 20070905

REACTIONS (2)
  - GASTRIC CANCER [None]
  - OEDEMA [None]
